FAERS Safety Report 9289368 (Version 1)
Quarter: 2013Q2

REPORT INFORMATION
  Report Type: Spontaneous
  Country: BR (occurrence: BR)
  Receive Date: 20130514
  Receipt Date: 20130514
  Transmission Date: 20140414
  Serious: Yes (Other)
  Sender: FDA-Public Use
  Company Number: PHHY2013BR047715

PATIENT
  Sex: Male

DRUGS (1)
  1. RITALINA [Suspect]
     Dosage: 10 MG, UNK

REACTIONS (7)
  - Learning disorder [Unknown]
  - Disturbance in attention [Unknown]
  - Irritability [Unknown]
  - Drug withdrawal syndrome [Unknown]
  - Somnolence [Unknown]
  - Abdominal pain [Unknown]
  - Headache [Unknown]
